FAERS Safety Report 22340469 (Version 1)
Quarter: 2023Q2

REPORT INFORMATION
  Report Type: Spontaneous
  Country: SE (occurrence: SE)
  Receive Date: 20230518
  Receipt Date: 20230518
  Transmission Date: 20230721
  Serious: Yes (Hospitalization)
  Sender: FDA-Public Use
  Company Number: None

PATIENT
  Age: 41 Year
  Sex: Female

DRUGS (2)
  1. PROMETHAZINE HYDROCHLORIDE\THIOUREA [Suspect]
     Active Substance: PROMETHAZINE HYDROCHLORIDE\THIOUREA
     Indication: Product used for unknown indication
     Dosage: SUSPECTED INTAKE OF ABOUT 600 MG
     Route: 065
     Dates: start: 20230407, end: 20230407
  2. PROPIOMAZINE [Suspect]
     Active Substance: PROPIOMAZINE
     Indication: Product used for unknown indication
     Dosage: SUSPECTED INTAKE OF ABOUT 250 G
     Route: 065
     Dates: start: 20230407, end: 20230407

REACTIONS (5)
  - Suicide attempt [Unknown]
  - Intentional self-injury [Unknown]
  - Toxicity to various agents [Unknown]
  - Depressed level of consciousness [Unknown]
  - Tachycardia [Unknown]

NARRATIVE: CASE EVENT DATE: 20230407
